FAERS Safety Report 4714297-1 (Version None)
Quarter: 2005Q3

REPORT INFORMATION
  Report Type: 
  Country: None (occurrence: None)
  Receive Date: 20050712
  Receipt Date: 20050629
  Transmission Date: 20060218
  Serious: Yes (Death)
  Sender: FDA-Public Use
  Company Number: NLWYE791804JUL05

PATIENT
  Age: 65 Year
  Sex: Male

DRUGS (9)
  1. GEMTUZUMAB OZOGAMICIN (GEMTUZUMAB OZOGAMICIN, INJECTION) [Suspect]
     Indication: ACUTE MYELOID LEUKAEMIA
  2. ACETAMINOPHEN [Concomitant]
  3. OXYCONTIN [Concomitant]
  4. IMODIUM [Concomitant]
  5. NEXIUM [Concomitant]
  6. PRIMPERAN TAB [Concomitant]
  7. CIPROFLOXACIN [Concomitant]
  8. DIFLUCAN [Concomitant]
  9. PENICILLIN G [Concomitant]

REACTIONS (1)
  - NEUTROPENIC COLITIS [None]
